FAERS Safety Report 4607590-4 (Version None)
Quarter: 2005Q1

REPORT INFORMATION
  Report Type: 
  Country: None (occurrence: None)
  Receive Date: 20050309
  Receipt Date: 20050221
  Transmission Date: 20050727
  Serious: Yes (Death, Life-Threatening, Hospitalization)
  Sender: FDA-Public Use
  Company Number: US_0502113356

PATIENT
  Age: 40 Year
  Sex: Male
  Weight: 42 kg

DRUGS (6)
  1. ALIMTA [Suspect]
     Indication: LUNG NEOPLASM MALIGNANT
     Dosage: 500 MG/M2
     Dates: start: 20050113, end: 20050203
  2. CISPLATIN [Suspect]
     Indication: LUNG NEOPLASM MALIGNANT
     Dosage: 75 MG/M2
     Dates: start: 20050113, end: 20050203
  3. FOLIC ACID [Concomitant]
  4. AMIODARONE [Concomitant]
  5. ONDANSETRON [Concomitant]
  6. DEXAMETHASONE [Concomitant]

REACTIONS (9)
  - ASTHENIA [None]
  - DIARRHOEA [None]
  - HYPOVOLAEMIC SHOCK [None]
  - NEUTROPENIA [None]
  - PLATELET COUNT DECREASED [None]
  - PNEUMONIA [None]
  - PROSTRATION [None]
  - SEPTIC SHOCK [None]
  - THERAPY NON-RESPONDER [None]
